FAERS Safety Report 7590367-8 (Version None)
Quarter: 2011Q3

REPORT INFORMATION
  Report Type: 
  Country: None (occurrence: None)
  Receive Date: 20110705
  Receipt Date: 20110623
  Transmission Date: 20111222
  Serious: Yes (Disabling)
  Sender: FDA-Public Use
  Company Number: US-ELI_LILLY_AND_COMPANY-USA040361555

PATIENT
  Sex: Male
  Weight: 94.091 kg

DRUGS (6)
  1. GLUCOPHAGE [Concomitant]
     Indication: DIABETES MELLITUS
     Dosage: 1000 UNK, 2/D
     Dates: end: 20040406
  2. ASPIRIN [Concomitant]
     Dosage: UNK, UNKNOWN
     Dates: start: 20040406
  3. AVANDAMET [Concomitant]
     Dosage: 2 MG, 2/D
  4. CIALIS [Suspect]
     Dosage: 20 MG, UNKNOWN
     Route: 048
     Dates: start: 20040212, end: 20040212
  5. SINGULAIR [Concomitant]
     Indication: BRONCHIAL HYPERREACTIVITY
     Dosage: 10 MG, DAILY (1/D)
  6. PREVACID [Concomitant]
     Indication: GASTROOESOPHAGEAL REFLUX DISEASE
     Dosage: 30 MG, DAILY (1/D)

REACTIONS (4)
  - LABYRINTHITIS [None]
  - DEAFNESS NEUROSENSORY [None]
  - TINNITUS [None]
  - AUDITORY RECRUITMENT [None]
